FAERS Safety Report 7119155-3 (Version None)
Quarter: 2010Q4

REPORT INFORMATION
  Report Type: 
  Country: None (occurrence: None)
  Receive Date: 20101123
  Receipt Date: 20101104
  Transmission Date: 20110411
  Serious: Yes (Other)
  Sender: FDA-Public Use
  Company Number: B0682888A

PATIENT
  Sex: Female

DRUGS (1)
  1. NIQUITIN MINI LOZENGES 4MG [Suspect]
     Route: 065

REACTIONS (2)
  - CHOKING [None]
  - SENSATION OF FOREIGN BODY [None]
